FAERS Safety Report 4556711-0 (Version None)
Quarter: 2005Q1

REPORT INFORMATION
  Report Type: 
  Country: None (occurrence: None)
  Receive Date: 20050118
  Receipt Date: 20050107
  Transmission Date: 20050727
  Serious: Yes (Disabling)
  Sender: FDA-Public Use
  Company Number: S04-USA-05952-01

PATIENT
  Age: 80 Year
  Sex: Female

DRUGS (13)
  1. NAMENDA [Suspect]
     Indication: VASCULAR DEMENTIA
     Dosage: 5 MG QD PO
     Route: 048
     Dates: start: 20040729, end: 20040804
  2. NAMENDA [Suspect]
     Indication: VASCULAR DEMENTIA
     Dosage: 5 MG BID PO
     Route: 048
     Dates: start: 20040805, end: 20040811
  3. NAMENDA [Suspect]
     Indication: VASCULAR DEMENTIA
     Dosage: 15 MG QD PO
     Route: 048
     Dates: start: 20040812, end: 20040818
  4. NAMENDA [Suspect]
     Indication: VASCULAR DEMENTIA
     Dosage: 10 MG BID PO
     Route: 048
     Dates: start: 20040819, end: 20040901
  5. NAMENDA [Suspect]
     Indication: VASCULAR DEMENTIA
     Dosage: 5 MG BID PO
     Route: 048
     Dates: start: 20040901, end: 20041126
  6. DEPAKOTE [Suspect]
     Dates: start: 20040729, end: 20040804
  7. KLONOPIN [Suspect]
     Dates: start: 20041101, end: 20041101
  8. SYNTHROID [Concomitant]
  9. VITAMIN C [Concomitant]
  10. ECHINACEA (ECHINACEA EXTRACT) [Concomitant]
  11. LACTULOSE [Concomitant]
  12. ASPIRIN [Concomitant]
  13. EX-LAX [Concomitant]

REACTIONS (12)
  - AGGRESSION [None]
  - AGITATION [None]
  - BLINDNESS UNILATERAL [None]
  - CONFUSIONAL STATE [None]
  - EYE HAEMORRHAGE [None]
  - HYPERSOMNIA [None]
  - HYPHAEMA [None]
  - MENTAL DISORDER [None]
  - RESTLESSNESS [None]
  - TREATMENT NONCOMPLIANCE [None]
  - VISUAL DISTURBANCE [None]
  - VITREOUS HAEMORRHAGE [None]
